FAERS Safety Report 6815040-2 (Version None)
Quarter: 2010Q2

REPORT INFORMATION
  Report Type: 
  Country: None (occurrence: None)
  Receive Date: 20100629
  Receipt Date: 20100617
  Transmission Date: 20101027
  Serious: Yes (Hospitalization, Other)
  Sender: FDA-Public Use
  Company Number: 7008487

PATIENT
  Sex: Female

DRUGS (2)
  1. REBIF [Suspect]
     Indication: RELAPSING-REMITTING MULTIPLE SCLEROSIS
     Dosage: 22 MCG, 3 IN 1 WK, SUBCUTANEOUS
     Route: 058
     Dates: start: 20091116
  2. MESTINON (PYRIDOSTIMGINE) (PYRIDOSTIGMINE BROMIDE) [Concomitant]

REACTIONS (3)
  - MENINGITIS VIRAL [None]
  - SPEECH DISORDER [None]
  - URINARY TRACT INFECTION [None]
